FAERS Safety Report 19849877 (Version 1)
Quarter: 2021Q3

REPORT INFORMATION
  Report Type: Spontaneous
  Country: US (occurrence: US)
  Receive Date: 20210917
  Receipt Date: 20210917
  Transmission Date: 20211014
  Serious: No
  Sender: FDA-Public Use
  Company Number: US-CATALYST PHARMACEUTICALS, INC-2021CAT00321

PATIENT
  Age: 59 Year
  Sex: Male
  Weight: 106.58 kg

DRUGS (2)
  1. MESTINON [Concomitant]
     Active Substance: PYRIDOSTIGMINE BROMIDE
  2. FIRDAPSE [Suspect]
     Active Substance: AMIFAMPRIDINE PHOSPHATE
     Indication: MYASTHENIC SYNDROME
     Dosage: 20 MG (2 PILLS), 5X/DAY (EVERY 3 HOURS)
     Route: 048
     Dates: start: 201903

REACTIONS (4)
  - COVID-19 [Recovered/Resolved]
  - Therapeutic response unexpected [Recovered/Resolved]
  - Overdose [Not Recovered/Not Resolved]
  - Unevaluable event [Not Recovered/Not Resolved]

NARRATIVE: CASE EVENT DATE: 20210710
